FAERS Safety Report 12144101 (Version 1)
Quarter: 2016Q1

REPORT INFORMATION
  Report Type: Spontaneous
  Country: JP (occurrence: JP)
  Receive Date: 20160304
  Receipt Date: 20160304
  Transmission Date: 20160526
  Serious: Yes (Other)
  Sender: FDA-Public Use
  Company Number: JP-UCBSA-2016006586

PATIENT
  Sex: Male

DRUGS (3)
  1. KEPPRA [Suspect]
     Active Substance: LEVETIRACETAM
     Indication: PRODUCT USED FOR UNKNOWN INDICATION
     Dosage: UNK
     Route: 048
  2. MUCOSTA [Concomitant]
     Active Substance: REBAMIPIDE
     Indication: SENSATION OF FOREIGN BODY
     Dosage: 4 TIMES (FORMULATION: OPTHALMIC SUSPENSION)
     Route: 047
  3. MUCOSTA [Concomitant]
     Active Substance: REBAMIPIDE
     Dosage: TWICE
     Route: 047

REACTIONS (2)
  - Sensation of foreign body [Unknown]
  - Benign neoplasm of skin [Unknown]
